FAERS Safety Report 12266658 (Version 1)
Quarter: 2016Q2

REPORT INFORMATION
  Report Type: Spontaneous
  Country: US (occurrence: US)
  Receive Date: 20160414
  Receipt Date: 20160414
  Transmission Date: 20160815
  Serious: No
  Sender: FDA-Public Use
  Company Number: US-TEVA-591437USA

PATIENT
  Age: 72 Year
  Sex: Female

DRUGS (1)
  1. GABAPENTIN. [Suspect]
     Active Substance: GABAPENTIN
     Dosage: 2 TID
     Dates: start: 20150813

REACTIONS (5)
  - Pruritus [Unknown]
  - Blister [Unknown]
  - Peripheral swelling [Unknown]
  - Rash [Unknown]
  - Product substitution issue [Unknown]

NARRATIVE: CASE EVENT DATE: 201508
